FAERS Safety Report 25045414 (Version 1)
Quarter: 2025Q1

REPORT INFORMATION
  Report Type: Spontaneous
  Country: US (occurrence: None)
  Receive Date: 20250305
  Receipt Date: 20250305
  Transmission Date: 20250409
  Serious: No
  Sender: FDA-CTU
  Company Number: None

PATIENT
  Age: 1 Day
  Sex: Male
  Weight: 2.45 kg

DRUGS (4)
  1. CYCLOMYDRIL [Suspect]
     Active Substance: CYCLOPENTOLATE HYDROCHLORIDE\PHENYLEPHRINE HYDROCHLORIDE
     Indication: Ophthalmological examination
     Route: 047
     Dates: start: 20250304, end: 20250304
  2. calcium chloride IV [Concomitant]
     Dates: start: 20250304, end: 20250304
  3. sodium chloride 12% IV [Concomitant]
     Dates: start: 20250304, end: 20250304
  4. AMINO ACIDS\DEXTROSE\ELECTROLYTES NOS [Concomitant]
     Active Substance: AMINO ACIDS\DEXTROSE\ELECTROLYTES NOS
     Dates: start: 20250303, end: 20250304

REACTIONS (2)
  - Periorbital disorder [None]
  - Skin discolouration [None]

NARRATIVE: CASE EVENT DATE: 20250304
